FAERS Safety Report 10480607 (Version 1)
Quarter: 2014Q3

REPORT INFORMATION
  Report Type: Spontaneous
  Country: US (occurrence: None)
  Receive Date: 20140904
  Receipt Date: 20140904
  Transmission Date: 20150326
  Serious: No
  Sender: FDA-Public Use
  Company Number: 229122

PATIENT
  Sex: Female

DRUGS (2)
  1. PICATO [Suspect]
     Active Substance: INGENOL MEBUTATE
     Dosage: STARTED APPROXIMATELY 2 MONTHS PRIOR TO THE TIME OF REPORTING
     Route: 061
  2. PICATO [Suspect]
     Active Substance: INGENOL MEBUTATE
     Indication: ACTINIC KERATOSIS
     Dosage: STARTED APPROXIMATELY 2 MONTHS PRIOR TO THE TIME OF REPORTING
     Route: 061

REACTIONS (4)
  - Application site erythema [None]
  - Application site scab [None]
  - Drug administered at inappropriate site [None]
  - Anosmia [None]
